FAERS Safety Report 9207366 (Version 2)
Quarter: 2013Q4

REPORT INFORMATION
  Report Type: Spontaneous
  Country: US (occurrence: US)
  Receive Date: 20130403
  Receipt Date: 20131213
  Transmission Date: 20140711
  Serious: Yes (Other)
  Sender: FDA-Public Use
  Company Number: US-BAYER-2013-040164

PATIENT
  Age: 31 Year
  Sex: Female

DRUGS (7)
  1. YAZ [Suspect]
     Dosage: UNK
     Dates: start: 2008, end: 200908
  2. YASMIN [Suspect]
     Dosage: UNK
     Dates: start: 2008, end: 200908
  3. OCELLA [Suspect]
     Dosage: UNK
     Dates: start: 2008, end: 200908
  4. KETOCONAZOLE [Concomitant]
     Dosage: 2 %, UNK
     Dates: start: 20090604, end: 20090710
  5. ALOCRIL [Concomitant]
     Dosage: 2 %, UNK
     Dates: start: 20090710
  6. HYDROCODONE W/APAP [Concomitant]
     Dosage: 5-500
     Dates: start: 20090803
  7. NEXIUM [Concomitant]
     Dosage: 40 MG, UNK
     Dates: start: 20090813

REACTIONS (7)
  - Gallbladder disorder [None]
  - Cholecystitis acute [None]
  - Injury [None]
  - Emotional distress [None]
  - Pain [None]
  - Anxiety [None]
  - Psychological trauma [None]
